FAERS Safety Report 11992924 (Version 1)
Quarter: 2016Q1

REPORT INFORMATION
  Report Type: Spontaneous
  Country: US (occurrence: None)
  Receive Date: 20160202
  Receipt Date: 20160202
  Transmission Date: 20160526
  Serious: Yes (Other)
  Sender: FDA-Public Use
  Company Number: None

PATIENT
  Age: 72 Year
  Sex: Female

DRUGS (1)
  1. MYCOPHENOLATE [Suspect]
     Active Substance: MYCOPHENOLIC ACID
     Dosage: DOSE FORM: ORAL
     Route: 048

REACTIONS (3)
  - Dry eye [None]
  - Eye haemorrhage [None]
  - Cataract [None]

NARRATIVE: CASE EVENT DATE: 20150129
